FAERS Safety Report 7475469-9 (Version None)
Quarter: 2011Q2

REPORT INFORMATION
  Report Type: 
  Country: None (occurrence: None)
  Receive Date: 20110512
  Receipt Date: 20110429
  Transmission Date: 20111010
  Serious: Yes (Other)
  Sender: FDA-Public Use
  Company Number: PHHY2011AT35348

PATIENT
  Age: 42 Year
  Sex: Female

DRUGS (5)
  1. TEKTURNA HCT [Suspect]
     Dosage: 150 MG, QD (1-0-0)
     Dates: start: 20100324, end: 20110419
  2. IMUREK [Concomitant]
     Dosage: 50 MG, UNK
     Dates: start: 20100324
  3. CALCIUM CARBONATE [Concomitant]
  4. URBASON [Concomitant]
     Dosage: 1 MG, DAILY PLUS 1 MG ON DEMAND
     Dates: start: 20100324
  5. OLEOVIT [Concomitant]
     Dosage: 40 DRP, QW (30-40 DROPS ONCE A WEEK)

REACTIONS (2)
  - EMPHYSEMA [None]
  - LUNG DISORDER [None]
